FAERS Safety Report 4791627-6 (Version None)
Quarter: 2005Q4

REPORT INFORMATION
  Report Type: 
  Country: None (occurrence: None)
  Receive Date: 20051007
  Receipt Date: 20050801
  Transmission Date: 20060501
  Serious: No
  Sender: FDA-Public Use
  Company Number: US-BRISTOL-MYERS SQUIBB COMPANY-13067871

PATIENT
  Age: 78 Year
  Sex: Female

DRUGS (1)
  1. AVAPRO [Suspect]
     Dosage: STARTED ON 300 MG DAILY, THEN MD SWITCHED TO 150 MG DAILY (300 MG TABLETS)

REACTIONS (1)
  - BLOOD PRESSURE DECREASED [None]
